APPROVED DRUG PRODUCT: HALOPERIDOL
Active Ingredient: HALOPERIDOL LACTATE
Strength: EQ 5MG BASE/ML
Dosage Form/Route: INJECTABLE;INJECTION
Application: A076464 | Product #001
Applicant: FOSUN PHARMA USA INC
Approved: Sep 29, 2004 | RLD: No | RS: No | Type: DISCN